FAERS Safety Report 8867554 (Version 1)
Quarter: 2012Q4

REPORT INFORMATION
  Report Type: 
  Country: US (occurrence: US)
  Receive Date: 20121025
  Receipt Date: 20121025
  Transmission Date: 20130627
  Serious: No
  Sender: FDA-Public Use
  Company Number: US-AMGEN-USASP2012017432

PATIENT
  Age: 65 Year
  Sex: Female
  Weight: 142.86 kg

DRUGS (14)
  1. ENBREL [Suspect]
     Indication: PRODUCT USED FOR UNKNOWN INDICATION
     Dosage: 50 mg, qwk
     Route: 058
  2. BUMETANIDE [Concomitant]
     Dosage: 0.5 mg, UNK
  3. ARTHROTEC [Concomitant]
     Dosage: UNK
  4. KLOR-CON [Concomitant]
     Dosage: 8 UNK, UNK
  5. METHOTREXATE [Concomitant]
     Dosage: 2.5 mg, UNK
  6. METHYLPRED [Concomitant]
     Dosage: 4 mg, UNK
  7. SYNTHROID [Concomitant]
     Dosage: 25 mug, UNK
  8. COUMADIN                           /00014802/ [Concomitant]
     Dosage: 1 mg, UNK
  9. JANUVIA [Concomitant]
     Dosage: 25 mg, UNK
  10. FOLIC ACID [Concomitant]
     Dosage: 1 mg, UNK
  11. MULTIVITAMIN                       /00097801/ [Concomitant]
     Dosage: UNK
  12. CALCIUM [Concomitant]
     Dosage: 500 UNK, UNK
  13. FISH OIL [Concomitant]
     Dosage: UNK
  14. VICODIN [Concomitant]
     Dosage: UNK

REACTIONS (2)
  - Injection site bruising [Unknown]
  - Injection site pruritus [Unknown]
